FAERS Safety Report 5133713-7 (Version None)
Quarter: 2006Q4

REPORT INFORMATION
  Report Type: 
  Country: None (occurrence: None)
  Receive Date: 20061024
  Receipt Date: 20060105
  Transmission Date: 20070319
  Serious: Yes (Death, Hospitalization, Other)
  Sender: FDA-Public Use
  Company Number: US-BAYER-200610106BWH

PATIENT
  Age: 56 Year
  Sex: Female
  Weight: 56 kg

DRUGS (19)
  1. SORAFENIB [Suspect]
     Indication: METASTATIC RENAL CELL CARCINOMA
     Dosage: TOTAL DAILY DOSE: 400 MG  UNIT DOSE: 200 MG
     Route: 048
     Dates: start: 20060203, end: 20060410
  2. SORAFENIB [Suspect]
     Dosage: TOTAL DAILY DOSE: 800 MG  UNIT DOSE: 200 MG
     Route: 048
     Dates: start: 20051215, end: 20051229
  3. SORAFENIB [Suspect]
     Dosage: TOTAL DAILY DOSE: 400 MG  UNIT DOSE: 200 MG
     Route: 048
     Dates: start: 20060120, end: 20060121
  4. LUNESTA [Concomitant]
     Indication: INSOMNIA
     Route: 048
     Dates: end: 20060101
  5. PERCOCET [Concomitant]
     Indication: ANALGESIC INTERVENTION SUPPORTIVE THERAPY
     Route: 048
     Dates: start: 20060331, end: 20060420
  6. PERCOCET [Concomitant]
     Route: 048
     Dates: end: 20060101
  7. IMODIUM [Concomitant]
     Indication: DIARRHOEA
     Dates: end: 20060101
  8. COMPAZINE [Concomitant]
     Indication: NAUSEA
     Route: 048
     Dates: end: 20060101
  9. ATIVAN [Concomitant]
     Indication: VOMITING
     Route: 048
     Dates: end: 20060101
  10. DILAUDID [Concomitant]
     Indication: ANALGESIC INTERVENTION SUPPORTIVE THERAPY
     Route: 042
  11. K-DUR 10 [Concomitant]
     Indication: HYPOKALAEMIA
     Route: 048
     Dates: start: 20060103, end: 20060104
  12. TAZIDIME [Concomitant]
     Indication: INFECTION
     Route: 042
     Dates: start: 20060102, end: 20060108
  13. ASCORBIC ACID [Concomitant]
     Indication: HYPERTENSION
     Route: 048
     Dates: start: 20060106
  14. VITAMIN A [Concomitant]
     Indication: GASTROINTESTINAL INFECTION
     Route: 048
  15. ZINC SULFATE [Concomitant]
     Indication: PROMOTION OF WOUND HEALING
     Route: 048
  16. OXYCONTIN [Concomitant]
     Indication: ANALGESIC INTERVENTION SUPPORTIVE THERAPY
     Route: 048
  17. DURAGESIC [Concomitant]
     Indication: ANALGESIC INTERVENTION SUPPORTIVE THERAPY
  18. PROTONIX [Concomitant]
     Indication: EROSIVE OESOPHAGITIS
  19. OXYCODONE HCL [Concomitant]
     Indication: ANALGESIC INTERVENTION SUPPORTIVE THERAPY
     Route: 048
     Dates: start: 20060331, end: 20060420

REACTIONS (5)
  - DEHYDRATION [None]
  - DIARRHOEA [None]
  - GASTRITIS [None]
  - METASTATIC RENAL CELL CARCINOMA [None]
  - RENAL FAILURE [None]
